FAERS Safety Report 22863767 (Version 3)
Quarter: 2023Q4

REPORT INFORMATION
  Report Type: Report from Study
  Country: CA (occurrence: CA)
  Receive Date: 20230825
  Receipt Date: 20231028
  Transmission Date: 20240109
  Serious: Yes (Other)
  Sender: FDA-Public Use
  Company Number: CA-TAKEDA-2023TUS082373

PATIENT
  Age: 51 Year
  Sex: Male

DRUGS (9)
  1. VEDOLIZUMAB [Suspect]
     Active Substance: VEDOLIZUMAB
     Indication: Colitis ulcerative
     Dosage: 300 MILLIGRAM
     Route: 042
     Dates: start: 20230517
  2. VEDOLIZUMAB [Suspect]
     Active Substance: VEDOLIZUMAB
     Dosage: 300 MILLIGRAM, Q4WEEKS
     Route: 042
     Dates: start: 20231003
  3. VEDOLIZUMAB [Suspect]
     Active Substance: VEDOLIZUMAB
     Dosage: 300 MILLIGRAM, Q4WEEKS
     Route: 042
  4. IMURAN [Concomitant]
     Active Substance: AZATHIOPRINE
     Dosage: UNK
     Dates: start: 202208
  5. PREDNISONE [Concomitant]
     Active Substance: PREDNISONE
     Dosage: UNK
     Dates: start: 202202
  6. CILAZAPRIL ANHYDROUS [Concomitant]
     Active Substance: CILAZAPRIL ANHYDROUS
     Dosage: 5 MILLIGRAM
     Route: 048
  7. PREGABALIN [Concomitant]
     Active Substance: PREGABALIN
     Dosage: 75 MILLIGRAM
     Route: 048
  8. ANSATIPIN [Concomitant]
     Dosage: UNK
  9. CRESTOR [Concomitant]
     Active Substance: ROSUVASTATIN CALCIUM
     Dosage: 20 MILLIGRAM
     Route: 048

REACTIONS (2)
  - Colitis ulcerative [Recovering/Resolving]
  - Off label use [Unknown]

NARRATIVE: CASE EVENT DATE: 20231003
